FAERS Safety Report 4684352-3 (Version None)
Quarter: 2005Q2

REPORT INFORMATION
  Report Type: 
  Country: None (occurrence: None)
  Receive Date: 20050531
  Receipt Date: 20040714
  Transmission Date: 20051028
  Serious: Yes (Life-Threatening, Hospitalization)
  Sender: FDA-Public Use
  Company Number: 200415335US

PATIENT
  Age: 80 Year
  Sex: Female

DRUGS (1)
  1. LOVENOX [Suspect]
     Indication: HIP ARTHROPLASTY
     Dosage: 30 MG Q12H

REACTIONS (1)
  - OPERATIVE HAEMORRHAGE [None]
